FAERS Safety Report 4737995-2 (Version None)
Quarter: 2005Q3

REPORT INFORMATION
  Report Type: 
  Country: None (occurrence: None)
  Receive Date: 20050805
  Receipt Date: 20050805
  Transmission Date: 20060218
  Serious: Yes (Hospitalization)
  Sender: FDA-Public Use
  Company Number: None

PATIENT
  Age: 52 Year
  Sex: Male

DRUGS (1)
  1. CIPROFLOXACIN [Suspect]
     Indication: PSEUDOMONAS INFECTION
     Dosage: 750 MG PO BID
     Route: 048

REACTIONS (2)
  - PALPABLE PURPURA [None]
  - VASCULITIS [None]
